FAERS Safety Report 7218189-8 (Version None)
Quarter: 2011Q1

REPORT INFORMATION
  Report Type: 
  Country: None (occurrence: None)
  Receive Date: 20110110
  Receipt Date: 20110104
  Transmission Date: 20110831
  Serious: Yes (Other)
  Sender: FDA-Public Use
  Company Number: CH-PFIZER INC-2011001350

PATIENT
  Age: 74 Year
  Sex: Female

DRUGS (3)
  1. SORTIS [Suspect]
     Dosage: 40 MG, 1X/DAY
     Route: 048
  2. ACETYLSALICYLIC ACID [Suspect]
     Dosage: 100 MG, 1X/DAY
     Route: 048
  3. COSAAR PLUS [Suspect]
     Indication: ESSENTIAL HYPERTENSION
     Dosage: 50 MG, 1X/DAY
     Route: 048

REACTIONS (2)
  - TONGUE OEDEMA [None]
  - ANGIOEDEMA [None]
